FAERS Safety Report 12557639 (Version 6)
Quarter: 2017Q4

REPORT INFORMATION
  Report Type: Report from Study
  Country: US (occurrence: US)
  Receive Date: 20160714
  Receipt Date: 20171003
  Transmission Date: 20180320
  Serious: Yes (Other)
  Sender: FDA-Public Use
  Company Number: PHEH2016US017374

PATIENT
  Sex: Female

DRUGS (3)
  1. FEMARA [Suspect]
     Active Substance: LETROZOLE
     Indication: BREAST CANCER METASTATIC
     Dosage: UNK
     Route: 065
     Dates: start: 20140101, end: 20140930
  2. AFINITOR [Suspect]
     Active Substance: EVEROLIMUS
     Indication: BREAST CANCER METASTATIC
     Route: 048
     Dates: start: 201410, end: 20160615
  3. FASLODEX [Suspect]
     Active Substance: FULVESTRANT
     Indication: PRODUCT USED FOR UNKNOWN INDICATION
     Route: 065

REACTIONS (15)
  - Arthralgia [Recovered/Resolved]
  - Drug resistance [Unknown]
  - Malignant neoplasm progression [Unknown]
  - Headache [Unknown]
  - Food allergy [Recovered/Resolved]
  - Drug ineffective [Recovered/Resolved]
  - Metastases to central nervous system [Unknown]
  - Nail disorder [Recovered/Resolved]
  - Treatment failure [Recovered/Resolved]
  - Breast cancer [Unknown]
  - Metastases to lung [Unknown]
  - Fatigue [Unknown]
  - Myalgia [Recovered/Resolved]
  - Drug ineffective [Unknown]
  - Metastases to liver [Unknown]

NARRATIVE: CASE EVENT DATE: 20141001
